FAERS Safety Report 16922965 (Version 2)
Quarter: 2020Q1

REPORT INFORMATION
  Report Type: Spontaneous
  Country: GR (occurrence: GR)
  Receive Date: 20191016
  Receipt Date: 20200107
  Transmission Date: 20200409
  Serious: Yes (Other)
  Sender: FDA-Public Use
  Company Number: GR-ROCHE-2430303

PATIENT
  Sex: Female
  Weight: 52 kg

DRUGS (23)
  1. ONCOVIN [Suspect]
     Active Substance: VINCRISTINE SULFATE
     Indication: DIFFUSE LARGE B-CELL LYMPHOMA
     Route: 065
     Dates: start: 201905
  2. DOXORUBICIN [Suspect]
     Active Substance: DOXORUBICIN
     Dosage: 6 CYCLES
     Route: 065
     Dates: start: 201901
  3. OXALIPLATIN. [Suspect]
     Active Substance: OXALIPLATIN
     Indication: DIFFUSE LARGE B-CELL LYMPHOMA
     Route: 065
     Dates: start: 201907
  4. ONCOVIN [Suspect]
     Active Substance: VINCRISTINE SULFATE
     Route: 065
     Dates: start: 201907
  5. PREDNISONE. [Suspect]
     Active Substance: PREDNISONE
     Route: 065
     Dates: start: 201907
  6. NAVELBINE [Suspect]
     Active Substance: VINORELBINE TARTRATE
     Dosage: 2 CYCLES
     Route: 065
     Dates: start: 201908
  7. GEMCITABINE. [Suspect]
     Active Substance: GEMCITABINE
     Route: 065
     Dates: start: 201908
  8. MABTHERA [Suspect]
     Active Substance: RITUXIMAB
     Dosage: 2 CYCLES
     Route: 042
     Dates: start: 201908
  9. CYCLOPHOSPHAMIDE. [Suspect]
     Active Substance: CYCLOPHOSPHAMIDE
     Route: 065
     Dates: start: 201907
  10. NAVELBINE [Suspect]
     Active Substance: VINORELBINE TARTRATE
     Indication: DIFFUSE LARGE B-CELL LYMPHOMA
     Dosage: 2 CYCLES
     Route: 065
     Dates: start: 201907
  11. METHOTREXATE. [Suspect]
     Active Substance: METHOTREXATE
     Indication: DIFFUSE LARGE B-CELL LYMPHOMA
     Route: 065
     Dates: start: 201903
  12. EPIRUBICIN [Suspect]
     Active Substance: EPIRUBICIN
     Indication: DIFFUSE LARGE B-CELL LYMPHOMA
     Route: 065
     Dates: start: 201905, end: 201907
  13. PREDNISONE. [Suspect]
     Active Substance: PREDNISONE
     Indication: DIFFUSE LARGE B-CELL LYMPHOMA
     Route: 065
     Dates: start: 201905
  14. MABTHERA [Suspect]
     Active Substance: RITUXIMAB
     Dosage: 2 CYCLES
     Route: 042
     Dates: start: 201907
  15. CYCLOPHOSPHAMIDE. [Suspect]
     Active Substance: CYCLOPHOSPHAMIDE
     Indication: DIFFUSE LARGE B-CELL LYMPHOMA
     Dosage: 6 CYCLES
     Route: 065
     Dates: start: 201809, end: 201901
  16. CYCLOPHOSPHAMIDE. [Suspect]
     Active Substance: CYCLOPHOSPHAMIDE
     Route: 065
     Dates: start: 201905
  17. DOXORUBICIN [Suspect]
     Active Substance: DOXORUBICIN
     Indication: DIFFUSE LARGE B-CELL LYMPHOMA
     Dosage: 6 CYCLES
     Route: 065
     Dates: start: 201809
  18. MABTHERA [Suspect]
     Active Substance: RITUXIMAB
     Indication: DIFFUSE LARGE B-CELL LYMPHOMA
     Dosage: 6 CYCLES
     Route: 042
     Dates: start: 201809, end: 201901
  19. MABTHERA [Suspect]
     Active Substance: RITUXIMAB
     Dosage: 3 CYCLES
     Route: 042
     Dates: start: 201905, end: 201907
  20. GEMCITABINE. [Suspect]
     Active Substance: GEMCITABINE
     Indication: DIFFUSE LARGE B-CELL LYMPHOMA
     Route: 065
     Dates: start: 201907
  21. VINCRISTINE [Suspect]
     Active Substance: VINCRISTINE
     Indication: DIFFUSE LARGE B-CELL LYMPHOMA
     Dosage: 6 CYCLES
     Route: 065
     Dates: start: 201809
  22. VINCRISTINE [Suspect]
     Active Substance: VINCRISTINE
     Dosage: 6 CYCLES
     Route: 065
     Dates: start: 201901
  23. OXALIPLATIN. [Suspect]
     Active Substance: OXALIPLATIN
     Route: 065
     Dates: start: 201908

REACTIONS (2)
  - Diffuse large B-cell lymphoma recurrent [Unknown]
  - Metastases to meninges [Unknown]
